FAERS Safety Report 5761542-X (Version None)
Quarter: 2008Q2

REPORT INFORMATION
  Report Type: 
  Country: None (occurrence: None)
  Receive Date: 20080606
  Receipt Date: 20080528
  Transmission Date: 20081010
  Serious: Yes (Death, Hospitalization)
  Sender: FDA-Public Use
  Company Number: ES-AMGEN-UK283689

PATIENT
  Sex: Female
  Weight: 52 kg

DRUGS (4)
  1. PANITUMUMAB [Suspect]
     Indication: COLORECTAL CANCER
     Route: 042
     Dates: start: 20080325, end: 20080506
  2. IRINOTECAN HCL [Suspect]
     Indication: COLORECTAL CANCER
     Route: 042
     Dates: start: 20080325, end: 20080506
  3. KARVEA [Concomitant]
  4. BEZAFIBRATE [Concomitant]

REACTIONS (1)
  - ILEUS [None]
